FAERS Safety Report 4698213-7 (Version None)
Quarter: 2005Q2

REPORT INFORMATION
  Report Type: 
  Country: None (occurrence: None)
  Receive Date: 20050623
  Receipt Date: 20050614
  Transmission Date: 20051028
  Serious: Yes (Life-Threatening, Other)
  Sender: FDA-Public Use
  Company Number: JP-JNJFOC-20050406902

PATIENT
  Sex: Male

DRUGS (25)
  1. RISPERIDONE [Suspect]
     Route: 049
     Dates: start: 20050330, end: 20050408
  2. HALOPERIDOL [Interacting]
     Route: 042
  3. HALOPERIDOL [Interacting]
     Route: 042
  4. HYPERALIMENTATIVE BASIC SOLUTION [Concomitant]
  5. HYPERALIMENTATIVE BASIC SOLUTION [Concomitant]
  6. HYPERALIMENTATIVE BASIC SOLUTION [Concomitant]
  7. HYPERALIMENTATIVE BASIC SOLUTION [Concomitant]
  8. SOYBEAN OIL [Concomitant]
     Indication: MALNUTRITION
     Route: 042
  9. FUROSEMIDE [Concomitant]
     Indication: HYPERTENSION
     Route: 042
  10. FAMOTIDINE [Concomitant]
     Indication: GASTRIC ULCER
     Route: 042
  11. MULTI-VITAMIN [Concomitant]
     Route: 042
  12. MULTI-VITAMIN [Concomitant]
     Route: 042
  13. MULTI-VITAMIN [Concomitant]
     Route: 042
  14. MULTI-VITAMIN [Concomitant]
     Route: 042
  15. MULTI-VITAMIN [Concomitant]
     Route: 042
  16. MULTI-VITAMIN [Concomitant]
     Route: 042
  17. MULTI-VITAMIN [Concomitant]
     Route: 042
  18. MULTI-VITAMIN [Concomitant]
     Indication: MALNUTRITION
     Route: 042
  19. PROTEAMIN [Concomitant]
     Route: 042
  20. PROTEAMIN [Concomitant]
     Indication: MALNUTRITION
     Route: 042
  21. AMINOPHYLINE [Concomitant]
     Indication: CARDIAC FAILURE
     Route: 042
  22. CIPROFLOXACIN [Concomitant]
     Indication: PNEUMONIA
     Route: 042
  23. TAZOBACTAM [Concomitant]
     Indication: PNEUMONIA
     Route: 042
  24. SACCHARATED FERRICOXIDE [Concomitant]
  25. METHYLPREDNISOLONE SODIUM SUCCINATE [Concomitant]

REACTIONS (3)
  - DRUG ADMINISTRATION ERROR [None]
  - DRUG INTERACTION [None]
  - TORSADE DE POINTES [None]
